FAERS Safety Report 12000411 (Version 1)
Quarter: 2016Q1

REPORT INFORMATION
  Report Type: Spontaneous
  Country: US (occurrence: None)
  Receive Date: 20160203
  Receipt Date: 20160203
  Transmission Date: 20160526
  Serious: No
  Sender: FDA-Public Use
  Company Number: None

PATIENT
  Sex: Female

DRUGS (1)
  1. IMITREX [Suspect]
     Active Substance: SUMATRIPTAN SUCCINATE
     Dosage: 1 TAB PRN MIGRAINE MAX 2/24HRS  ORAL
     Route: 048

REACTIONS (7)
  - Arthralgia [None]
  - Tenderness [None]
  - Hyperaesthesia [None]
  - Pain [None]
  - Burning sensation [None]
  - Lethargy [None]
  - Facial pain [None]
